FAERS Safety Report 9492890 (Version 1)
Quarter: 2013Q3

REPORT INFORMATION
  Report Type: Spontaneous
  Country: GB (occurrence: GB)
  Receive Date: 20130901
  Receipt Date: 20130901
  Transmission Date: 20140515
  Serious: Yes (Death, Other)
  Sender: FDA-Public Use
  Company Number: GB-PFIZER INC-2013249272

PATIENT
  Age: 63 Year
  Sex: Male

DRUGS (3)
  1. CHAMPIX [Suspect]
     Indication: SMOKING CESSATION THERAPY
     Dosage: 0.5MG 1-2 DAILY FOR 7 DAY
     Route: 048
     Dates: start: 20130531, end: 2013
  2. CHAMPIX [Suspect]
     Dosage: 1 MG, 2X/DAY
     Route: 048
     Dates: start: 2013, end: 2013
  3. CHAMPIX [Suspect]
     Dosage: 0.5 MG, 2X/DAY
     Route: 048
     Dates: start: 2013, end: 20130711

REACTIONS (3)
  - Cardiac failure congestive [Fatal]
  - Lymphoma [Fatal]
  - Gastrointestinal disorder [Recovered/Resolved]
